FAERS Safety Report 19455039 (Version 4)
Quarter: 2022Q3

REPORT INFORMATION
  Report Type: Report from Study
  Country: NZ (occurrence: NZ)
  Receive Date: 20210623
  Receipt Date: 20220711
  Transmission Date: 20221027
  Serious: Yes (Other)
  Sender: FDA-Public Use
  Company Number: NZ-JNJFOC-20210629965

PATIENT
  Sex: Male

DRUGS (2)
  1. IMBRUVICA [Suspect]
     Active Substance: IBRUTINIB
     Indication: Chronic lymphocytic leukaemia
     Route: 048
  2. IMBRUVICA [Suspect]
     Active Substance: IBRUTINIB
     Route: 048

REACTIONS (6)
  - Lower respiratory tract infection [Unknown]
  - Infective exacerbation of bronchiectasis [Unknown]
  - Hip surgery [Unknown]
  - Immunoglobulins decreased [Unknown]
  - Off label use [Unknown]
  - Product use issue [Unknown]
